FAERS Safety Report 4265438-4 (Version None)
Quarter: 2004Q1

REPORT INFORMATION
  Report Type: 
  Country: None (occurrence: None)
  Receive Date: 20040107
  Receipt Date: 20040107
  Transmission Date: 20041129
  Serious: No
  Sender: FDA-Public Use
  Company Number: None

PATIENT

DRUGS (3)
  1. TIKOSYN [Suspect]
  2. COUMADIN [Suspect]
     Dosage: TABLET
  3. FLUOROURACIL [Suspect]
     Dosage: INJECTABLE

REACTIONS (5)
  - COAGULOPATHY [None]
  - DIARRHOEA [None]
  - HYPOKALAEMIA [None]
  - INTERNATIONAL NORMALISED RATIO INCREASED [None]
  - MEDICATION ERROR [None]
